FAERS Safety Report 10691834 (Version 1)
Quarter: 2015Q1

REPORT INFORMATION
  Report Type: Spontaneous
  Country: US (occurrence: US)
  Receive Date: 20150105
  Receipt Date: 20150105
  Transmission Date: 20150720
  Serious: No
  Sender: FDA-Public Use
  Company Number: US-GLAXOSMITHKLINE-A1066146A

PATIENT

DRUGS (2)
  1. LOVAZA [Suspect]
     Active Substance: OMEGA-3-ACID ETHYL ESTERS
     Indication: PRODUCT USED FOR UNKNOWN INDICATION
     Dates: start: 201112
  2. FISH OIL [Concomitant]
     Active Substance: FISH OIL

REACTIONS (1)
  - Therapeutic response delayed [Unknown]

NARRATIVE: CASE EVENT DATE: 201401
